FAERS Safety Report 7270779-2 (Version None)
Quarter: 2011Q1

REPORT INFORMATION
  Report Type: 
  Country: None (occurrence: None)
  Receive Date: 20110202
  Receipt Date: 20110128
  Transmission Date: 20110831
  Serious: Yes (Death, Hospitalization, Other)
  Sender: FDA-Public Use
  Company Number: US-PFIZER INC-2010157190

PATIENT
  Sex: Female

DRUGS (17)
  1. CELEBREX [Concomitant]
     Indication: PAIN
  2. AMBIEN [Concomitant]
     Indication: INSOMNIA
     Dosage: UNK
     Dates: start: 20061101, end: 20071101
  3. CELEBREX [Concomitant]
     Indication: FIBROMYALGIA
     Dosage: UNK
     Dates: start: 20070401, end: 20071101
  4. DIOVAN [Concomitant]
     Indication: HYPERTENSION
     Dosage: UNK
     Dates: start: 20070201, end: 20100301
  5. ESTRATEST [Concomitant]
     Indication: HORMONE REPLACEMENT THERAPY
     Dosage: UNK
     Dates: start: 20061101, end: 20080601
  6. PROVIGIL [Concomitant]
     Indication: INSOMNIA
     Dosage: UNK
     Dates: start: 20070101, end: 20090901
  7. LORAZEPAM [Concomitant]
     Indication: ANXIETY
     Dosage: UNK
     Dates: start: 20070301, end: 20071101
  8. REQUIP [Concomitant]
     Indication: RESTLESS LEGS SYNDROME
     Dosage: UNK
     Dates: start: 20070301, end: 20071101
  9. REQUIP [Concomitant]
     Indication: FIBROMYALGIA
  10. TIZANIDINE [Concomitant]
     Indication: PAIN
     Dosage: UNK
     Dates: start: 20050101, end: 20070901
  11. CYCLOBENZAPRINE [Concomitant]
     Indication: PAIN
  12. ESTRATEST [Concomitant]
     Indication: FIBROMYALGIA
  13. LEVOTHYROXINE [Concomitant]
     Indication: HYPOTHYROIDISM
     Dosage: UNK
     Dates: start: 20050101, end: 20100401
  14. CHANTIX [Suspect]
     Indication: SMOKING CESSATION THERAPY
     Dosage: 0.5 MG AND 1 MG
     Route: 048
     Dates: start: 20070601, end: 20070801
  15. CYCLOBENZAPRINE [Concomitant]
     Indication: MUSCLE SPASMS
     Dosage: UNK
     Dates: start: 20070301, end: 20080401
  16. METOPROLOL [Concomitant]
     Indication: HYPERTENSION
     Dosage: UNK
     Dates: start: 20061201, end: 20091101
  17. ZYPREXA [Concomitant]
     Indication: DEPRESSION
     Dosage: UNK
     Dates: start: 20060301, end: 20091201

REACTIONS (6)
  - SUICIDE ATTEMPT [None]
  - DEPRESSION [None]
  - ANXIETY [None]
  - MENTAL DISORDER [None]
  - COMPLETED SUICIDE [None]
  - INTENTIONAL OVERDOSE [None]
